FAERS Safety Report 13763955 (Version 1)
Quarter: 2017Q3

REPORT INFORMATION
  Report Type: Spontaneous
  Country: GB (occurrence: GB)
  Receive Date: 20170718
  Receipt Date: 20170718
  Transmission Date: 20171127
  Serious: Yes (Other)
  Sender: FDA-Public Use
  Company Number: GB-PFIZER INC-2017302683

PATIENT
  Age: 73 Year
  Sex: Female
  Weight: 66.67 kg

DRUGS (3)
  1. TEMAZEPAM. [Concomitant]
     Active Substance: TEMAZEPAM
     Dosage: UNK
  2. AMLODIPINE BESILATE [Suspect]
     Active Substance: AMLODIPINE BESYLATE
     Indication: HYPERTENSION
     Dosage: 5 MG, 1X/DAY
     Route: 048
     Dates: start: 20170619, end: 20170628
  3. ELLESTE-DUET [Concomitant]
     Dosage: UNK

REACTIONS (5)
  - Somnolence [Recovered/Resolved with Sequelae]
  - Phlebitis [Unknown]
  - Pain in extremity [Unknown]
  - Peripheral swelling [Unknown]
  - Vasculitis [Unknown]

NARRATIVE: CASE EVENT DATE: 20170619
